FAERS Safety Report 5240537-9 (Version None)
Quarter: 2007Q1

REPORT INFORMATION
  Report Type: 
  Country: None (occurrence: None)
  Receive Date: 20061208
  Receipt Date: 20050920
  Transmission Date: 20070707
  Serious: Yes (Other)
  Sender: FDA-Public Use
  Company Number: 2005UW13954

PATIENT
  Age: 61 Year
  Sex: Female
  Weight: 136.07 kg

DRUGS (6)
  1. CRESTOR [Suspect]
     Indication: BLOOD CHOLESTEROL INCREASED
     Dosage: 10 MG DAILY PO
     Route: 048
  2. CRESTOR [Suspect]
     Indication: BLOOD CHOLESTEROL INCREASED
     Dosage: 10 MG DAILY PO
     Route: 048
     Dates: start: 20050912
  3. IRON [Concomitant]
  4. FUROSEMIDE [Concomitant]
  5. PRENATAL VITAMINS [Concomitant]
  6. NAPROXEN [Concomitant]

REACTIONS (7)
  - COLD SWEAT [None]
  - EAR PAIN [None]
  - NASAL CONGESTION [None]
  - NASOPHARYNGITIS [None]
  - PHARYNGOLARYNGEAL PAIN [None]
  - PRODUCTIVE COUGH [None]
  - PYREXIA [None]
